FAERS Safety Report 6936791-5 (Version None)
Quarter: 2010Q3

REPORT INFORMATION
  Report Type: 
  Country: None (occurrence: None)
  Receive Date: 20100823
  Receipt Date: 20100813
  Transmission Date: 20110219
  Serious: Yes (Hospitalization)
  Sender: FDA-Public Use
  Company Number: AU-MERCK-1008USA01670

PATIENT
  Sex: Male

DRUGS (4)
  1. VYTORIN [Suspect]
     Route: 065
     Dates: end: 20100613
  2. ASPIRIN [Concomitant]
     Route: 065
  3. LANTUS [Concomitant]
     Route: 065
  4. METFORMIN HYDROCHLORIDE [Concomitant]
     Route: 065

REACTIONS (4)
  - CARDIAC FAILURE CONGESTIVE [None]
  - LIVER INJURY [None]
  - MYOSITIS [None]
  - RENAL FAILURE ACUTE [None]
